FAERS Safety Report 5700388-5 (Version None)
Quarter: 2008Q2

REPORT INFORMATION
  Report Type: 
  Country: None (occurrence: None)
  Receive Date: 20080410
  Receipt Date: 20080329
  Transmission Date: 20081010
  Serious: Yes (Other)
  Sender: FDA-Public Use
  Company Number: US-PFIZER INC-2008012820

PATIENT
  Sex: Female
  Weight: 67.1 kg

DRUGS (6)
  1. CHANTIX [Suspect]
     Indication: SMOKING CESSATION THERAPY
  2. TOPAMAX [Concomitant]
  3. TRAZODONE HCL [Concomitant]
     Dosage: DAILY DOSE:50MG
  4. KLONOPIN [Concomitant]
     Dosage: DAILY DOSE:2MG
  5. PROVENTIL TABLET [Concomitant]
  6. VITAMIN B-12 [Concomitant]

REACTIONS (5)
  - BIPOLAR DISORDER [None]
  - IRRITABILITY [None]
  - MOOD SWINGS [None]
  - OBSESSIVE-COMPULSIVE DISORDER [None]
  - WEIGHT INCREASED [None]
